FAERS Safety Report 14243253 (Version 3)
Quarter: 2021Q4

REPORT INFORMATION
  Report Type: Spontaneous
  Country: IN (occurrence: IN)
  Receive Date: 20171201
  Receipt Date: 20211008
  Transmission Date: 20220304
  Serious: Yes (Other)
  Sender: FDA-Public Use
  Company Number: IN-BRISTOL-MYERS SQUIBB COMPANY-BMS-2017-107818

PATIENT
  Age: 24 Year
  Sex: Male

DRUGS (1)
  1. TRIAMCINOLONE ACETONIDE [Suspect]
     Active Substance: TRIAMCINOLONE ACETONIDE
     Indication: Urticaria
     Dosage: UNK
     Route: 030

REACTIONS (2)
  - Embolia cutis medicamentosa [Unknown]
  - Skin ulcer [Recovered/Resolved]
